FAERS Safety Report 5475435-9 (Version None)
Quarter: 2007Q4

REPORT INFORMATION
  Report Type: 
  Country: None (occurrence: None)
  Receive Date: 20071003
  Receipt Date: 20070924
  Transmission Date: 20080405
  Serious: Yes (Other)
  Sender: FDA-Public Use
  Company Number: US-JNJFOC-20070904889

PATIENT
  Age: 70 Year
  Sex: Male
  Weight: 90.7 kg

DRUGS (3)
  1. DOXIL [Suspect]
     Indication: MULTIPLE MYELOMA
     Route: 042
  2. VELCADE [Suspect]
     Indication: MULTIPLE MYELOMA
     Route: 065
  3. DEXAMETHASONE 0.5MG TAB [Concomitant]
     Route: 065

REACTIONS (3)
  - EYE SWELLING [None]
  - LACRIMATION INCREASED [None]
  - SKIN NODULE [None]
